FAERS Safety Report 11621828 (Version 2)
Quarter: 2015Q4

REPORT INFORMATION
  Report Type: Spontaneous
  Country: US (occurrence: US)
  Receive Date: 20151013
  Receipt Date: 20151125
  Transmission Date: 20160304
  Serious: Yes (Other)
  Sender: FDA-Public Use
  Company Number: US-LEO PHARMA-237456

PATIENT
  Age: 53 Year
  Sex: Female

DRUGS (2)
  1. PICATO [Suspect]
     Active Substance: INGENOL MEBUTATE
     Indication: ACTINIC KERATOSIS
     Dates: start: 20151001, end: 20151003
  2. TYLENOL [Concomitant]
     Active Substance: ACETAMINOPHEN
     Indication: HEADACHE

REACTIONS (10)
  - Visual acuity reduced [Recovered/Resolved]
  - Swelling [Recovering/Resolving]
  - Contusion [Recovered/Resolved]
  - Face injury [None]
  - Application site vesicles [Recovered/Resolved]
  - Swelling face [None]
  - Contusion [None]
  - Application site erosion [Recovered/Resolved]
  - Headache [Recovered/Resolved]
  - Fall [None]

NARRATIVE: CASE EVENT DATE: 20151001
